FAERS Safety Report 10449098 (Version 1)
Quarter: 2014Q3

REPORT INFORMATION
  Report Type: Spontaneous
  Country: US (occurrence: None)
  Receive Date: 20140911
  Receipt Date: 20140911
  Transmission Date: 20150326
  Serious: Yes (Disabling)
  Sender: FDA-Public Use
  Company Number: None

PATIENT
  Age: 71 Year
  Sex: Male
  Weight: 87.09 kg

DRUGS (8)
  1. REPAIR-VITE [Concomitant]
  2. PROSTANOL [Concomitant]
  3. LUNESTA [Concomitant]
     Active Substance: ESZOPICLONE
  4. QUERCETIN-BROMELAIN [Concomitant]
  5. AMITIZA [Suspect]
     Active Substance: LUBIPROSTONE
     Indication: SMALL INTESTINAL OBSTRUCTION
     Route: 048
     Dates: start: 20140822, end: 20140823
  6. CIALIS [Concomitant]
     Active Substance: TADALAFIL
  7. VITAMIN D3 [Concomitant]
     Active Substance: CHOLECALCIFEROL
  8. ASPIRIN. [Concomitant]
     Active Substance: ASPIRIN

REACTIONS (11)
  - Condition aggravated [None]
  - Dizziness [None]
  - Abdominal distension [None]
  - Flatulence [None]
  - Abdominal pain upper [None]
  - Discomfort [None]
  - Insomnia [None]
  - Pain [None]
  - Balance disorder [None]
  - Mental impairment [None]
  - Feeling abnormal [None]

NARRATIVE: CASE EVENT DATE: 20140822
